FAERS Safety Report 7363679-0 (Version None)
Quarter: 2011Q1

REPORT INFORMATION
  Report Type: 
  Country: None (occurrence: None)
  Receive Date: 20110321
  Receipt Date: 20110316
  Transmission Date: 20110831
  Serious: Yes (Death, Other)
  Sender: FDA-Public Use
  Company Number: US-JNJFOC-20110304426

PATIENT
  Age: 36 Year
  Sex: Male

DRUGS (24)
  1. CHLORDIAZEPOXIDE [Concomitant]
     Route: 065
  2. LITHIUM CARBONATE [Concomitant]
     Route: 065
  3. RANITIDINE [Concomitant]
     Route: 065
  4. LANSOPRAZOLE [Concomitant]
     Route: 065
  5. VITAMIN B [Concomitant]
     Route: 065
  6. TRAZODONE [Interacting]
     Indication: PRODUCT USED FOR UNKNOWN INDICATION
     Dosage: IN 1 DAY
     Route: 065
  7. LORAZEPAM [Concomitant]
     Route: 065
  8. ENALAPRIL [Concomitant]
     Route: 065
  9. FOLIC ACID [Concomitant]
     Route: 065
  10. PROMETHAZINE [Concomitant]
     Route: 065
  11. METOCLOPRAMIDE [Concomitant]
     Route: 065
  12. VENLAFAXINE [Interacting]
     Indication: PRODUCT USED FOR UNKNOWN INDICATION
     Dosage: IN 1 DAY
     Route: 065
  13. METOPROLOL [Concomitant]
     Route: 065
  14. THIAMINE [Concomitant]
     Route: 065
  15. TRAMADOL HCL [Suspect]
     Indication: PRODUCT USED FOR UNKNOWN INDICATION
     Dosage: 1 TO 2 TABLETS AS NEEDED
     Route: 048
  16. QUETIAPINE [Interacting]
     Indication: PRODUCT USED FOR UNKNOWN INDICATION
     Dosage: 100 TO 150 MG EVERY DAY
     Route: 065
  17. VENLAFAXINE [Interacting]
     Dosage: IN 1 DAY
     Route: 065
  18. TRAZODONE [Interacting]
     Dosage: IN 1 DAY
     Route: 065
  19. TEMAZEPAM [Concomitant]
     Route: 065
  20. FAMOTIDINE [Concomitant]
     Route: 065
  21. DOCUSATE SODIUM [Concomitant]
     Route: 065
  22. ACETAMINOPHEN [Concomitant]
     Route: 065
  23. FUROSEMIDE [Concomitant]
     Route: 065
  24. BENZONATATE [Concomitant]
     Route: 065

REACTIONS (8)
  - SYNCOPE [None]
  - HEAD INJURY [None]
  - CONVULSIVE THRESHOLD LOWERED [None]
  - DRUG INTERACTION [None]
  - TONGUE DISORDER [None]
  - CONVULSION [None]
  - TREMOR [None]
  - INSOMNIA [None]
